FAERS Safety Report 12851476 (Version 1)
Quarter: 2016Q4

REPORT INFORMATION
  Report Type: Spontaneous
  Country: US (occurrence: US)
  Receive Date: 20161016
  Receipt Date: 20161016
  Transmission Date: 20170207
  Serious: No
  Sender: FDA-Public Use
  Company Number: US-TAIHO ONCOLOGY INC-EU-2016-00713

PATIENT
  Age: 82 Year
  Sex: Female

DRUGS (6)
  1. LONSURF [Suspect]
     Active Substance: TIPIRACIL HYDROCHLORIDE\TRIFLURIDINE
     Indication: COLON CANCER
     Dosage: CURRENT CYCLE 1
     Route: 048
     Dates: start: 20160316
  2. POTASSIUM CHLORIDE. [Concomitant]
     Active Substance: POTASSIUM CHLORIDE
     Dosage: NI
  3. EMLA [Concomitant]
     Active Substance: LIDOCAINE\PRILOCAINE
     Dosage: NI
  4. TOCOPHEROL [Concomitant]
     Active Substance: TOCOPHEROL
     Dosage: NI
  5. MAGNESIUM [Concomitant]
     Active Substance: MAGNESIUM
     Dosage: NI
  6. GABAPENTIN. [Concomitant]
     Active Substance: GABAPENTIN
     Dosage: NI

REACTIONS (3)
  - Malaise [Unknown]
  - Gastric polyps [Unknown]
  - Kidney infection [Recovering/Resolving]

NARRATIVE: CASE EVENT DATE: 2016
